FAERS Safety Report 14686864 (Version 1)
Quarter: 2018Q1

REPORT INFORMATION
  Report Type: Spontaneous
  Country: US (occurrence: US)
  Receive Date: 20180327
  Receipt Date: 20180327
  Transmission Date: 20180509
  Serious: Yes (Hospitalization)
  Sender: FDA-Public Use
  Company Number: US-VIFOR (INTERNATIONAL) INC.-VIT-2016-02380

PATIENT
  Age: 62 Year
  Sex: Male

DRUGS (11)
  1. TEMAZEPAM. [Concomitant]
     Active Substance: TEMAZEPAM
     Dates: end: 20160501
  2. MILRINONE [Concomitant]
     Active Substance: MILRINONE
     Dates: end: 20160501
  3. LASIX [Concomitant]
     Active Substance: FUROSEMIDE
     Dates: end: 20160501
  4. TIKOSYN [Concomitant]
     Active Substance: DOFETILIDE
     Dates: end: 20160501
  5. GABAPENTIN. [Concomitant]
     Active Substance: GABAPENTIN
     Dates: end: 20160501
  6. SPIRONOLACTONE. [Concomitant]
     Active Substance: SPIRONOLACTONE
     Dates: end: 20160501
  7. GLUCOSE [Concomitant]
     Active Substance: DEXTROSE
     Dates: end: 20160501
  8. CELEXA [Concomitant]
     Active Substance: CITALOPRAM HYDROBROMIDE
     Dates: end: 20160501
  9. VELTASSA [Suspect]
     Active Substance: PATIROMER
     Indication: HYPERKALAEMIA
     Route: 048
     Dates: start: 20160418, end: 20160501
  10. BISOPROLOL FUMARATE. [Concomitant]
     Active Substance: BISOPROLOL FUMARATE
     Dates: end: 20160501
  11. COUMADIN [Concomitant]
     Active Substance: WARFARIN SODIUM
     Dates: end: 20160501

REACTIONS (2)
  - Chronic kidney disease [Recovering/Resolving]
  - Heart transplant [Recovered/Resolved]

NARRATIVE: CASE EVENT DATE: 201605
